FAERS Safety Report 21200687 (Version 1)
Quarter: 2022Q3

REPORT INFORMATION
  Report Type: Spontaneous
  Country: DE (occurrence: DE)
  Receive Date: 20220811
  Receipt Date: 20220811
  Transmission Date: 20221027
  Serious: Yes (Other)
  Sender: FDA-Public Use
  Company Number: DE-NOVARTISPH-NVSC2022DE179269

PATIENT
  Age: 39 Year
  Sex: Female
  Weight: 59 kg

DRUGS (9)
  1. CROMOLYN SODIUM [Suspect]
     Active Substance: CROMOLYN SODIUM
     Indication: Dyspnoea
     Dosage: UNK
     Route: 065
  2. EBASTINE [Suspect]
     Active Substance: EBASTINE
     Indication: Anaphylaxis prophylaxis
     Dosage: 5 MG, QD (5 MG, UNK)
     Route: 065
  3. DIMETHINDENE [Suspect]
     Active Substance: DIMETHINDENE
     Indication: Feeling hot
     Dosage: UNK (2 AMPULES)
     Route: 061
  4. DIMETHINDENE [Suspect]
     Active Substance: DIMETHINDENE
     Indication: Premedication
     Dosage: UNK (SEVERAL TIMES A DAY)
     Route: 065
  5. CLOBETASOL PROPIONATE [Suspect]
     Active Substance: CLOBETASOL PROPIONATE
     Indication: Product used for unknown indication
     Dosage: UNK, QD
     Route: 065
  6. GADOBUTROL [Suspect]
     Active Substance: GADOBUTROL
     Indication: Magnetic resonance imaging hepatobiliary
     Dosage: 15 ML, 1 TOTAL (15 ML, ONCE)
     Route: 065
     Dates: start: 20121016, end: 20121016
  7. TAGAMET [Concomitant]
     Active Substance: CIMETIDINE
     Indication: Premedication
     Dosage: UNK (2 AMPOULES)
     Route: 065
  8. PREDNISOLONE SODIUM SUCCINATE [Concomitant]
     Active Substance: PREDNISOLONE SODIUM SUCCINATE
     Indication: Premedication
     Dosage: 250 MG
     Route: 065
  9. AZATHIOPRINE [Concomitant]
     Active Substance: AZATHIOPRINE
     Indication: Immunosuppressant drug therapy
     Dosage: 150
     Route: 065

REACTIONS (15)
  - Anaphylactic reaction [Recovering/Resolving]
  - Injection site extravasation [Not Recovered/Not Resolved]
  - Feeling hot [Not Recovered/Not Resolved]
  - Dyspnoea [Recovering/Resolving]
  - Pruritus [Recovering/Resolving]
  - Erythema [Not Recovered/Not Resolved]
  - Tachycardia [Not Recovered/Not Resolved]
  - Musculoskeletal disorder [Not Recovered/Not Resolved]
  - Skin reaction [Recovering/Resolving]
  - Feeling hot [Not Recovered/Not Resolved]
  - Peripheral swelling [Not Recovered/Not Resolved]
  - Conjunctivitis [Not Recovered/Not Resolved]
  - Erythema [Not Recovered/Not Resolved]
  - Subcutaneous haematoma [Not Recovered/Not Resolved]
  - Urticaria [Not Recovered/Not Resolved]

NARRATIVE: CASE EVENT DATE: 20121016
